FAERS Safety Report 14999431 (Version 5)
Quarter: 2020Q2

REPORT INFORMATION
  Report Type: Spontaneous
  Country: US (occurrence: US)
  Receive Date: 20180612
  Receipt Date: 20200619
  Transmission Date: 20200713
  Serious: No
  Sender: FDA-Public Use
  Company Number: US-PFIZER INC-2018237934

PATIENT
  Age: 60 Year
  Sex: Female
  Weight: 72.56 kg

DRUGS (2)
  1. XELJANZ XR [Suspect]
     Active Substance: TOFACITINIB CITRATE
     Indication: RHEUMATOID ARTHRITIS
     Dosage: 11 MG, DAILY
     Route: 048
     Dates: start: 20180327
  2. XELJANZ XR [Suspect]
     Active Substance: TOFACITINIB CITRATE
     Dosage: 11 MG, DAILY
     Route: 048
     Dates: start: 2019

REACTIONS (3)
  - Sinusitis [Unknown]
  - Blood cholesterol increased [Unknown]
  - Fatigue [Unknown]

NARRATIVE: CASE EVENT DATE: 20180603
